FAERS Safety Report 5519269-5 (Version None)
Quarter: 2007Q4

REPORT INFORMATION
  Report Type: 
  Country: None (occurrence: None)
  Receive Date: 20071116
  Receipt Date: 20071112
  Transmission Date: 20080405
  Serious: Yes (Hospitalization, Other)
  Sender: FDA-Public Use
  Company Number: US-AVENTIS-200717995US

PATIENT
  Sex: Female

DRUGS (5)
  1. LASIX [Suspect]
     Dosage: DOSE: UNK
  2. THALOMID [Suspect]
     Indication: LUNG CANCER METASTATIC
     Route: 048
     Dates: start: 20060101, end: 20060717
  3. TARCEVA                            /01611401/ [Concomitant]
     Dosage: DOSE: UNK
  4. DECADRON [Concomitant]
     Dosage: DOSE: UNK
  5. VITAMINS [Concomitant]
     Dosage: DOSE: UNK

REACTIONS (3)
  - DEHYDRATION [None]
  - METASTASES TO CENTRAL NERVOUS SYSTEM [None]
  - PARAESTHESIA [None]
